FAERS Safety Report 20540194 (Version 1)
Quarter: 2022Q1

REPORT INFORMATION
  Report Type: Spontaneous
  Country: CA (occurrence: CA)
  Receive Date: 20220302
  Receipt Date: 20220302
  Transmission Date: 20220423
  Serious: Yes (Other)
  Sender: FDA-Public Use
  Company Number: CA-PFIZER INC-202101426517

PATIENT
  Age: 51 Year
  Sex: Male
  Weight: 107 kg

DRUGS (8)
  1. ZIRABEV [Suspect]
     Active Substance: BEVACIZUMAB-BVZR
     Indication: Glioblastoma
     Dosage: Q 2 WEEKS (800 MG)
     Route: 042
     Dates: start: 20211020
  2. ZIRABEV [Suspect]
     Active Substance: BEVACIZUMAB-BVZR
     Dosage: 10 MG/KG EVERY 3 WEEKS
     Route: 042
     Dates: start: 20211020, end: 20220202
  3. ZIRABEV [Suspect]
     Active Substance: BEVACIZUMAB-BVZR
     Dosage: Q 2 WEEKS (270 MG)
     Route: 042
     Dates: start: 20211020
  4. ZIRABEV [Suspect]
     Active Substance: BEVACIZUMAB-BVZR
     Dosage: Q 2 WEEKS
     Dates: start: 20211102, end: 20211102
  5. ZIRABEV [Suspect]
     Active Substance: BEVACIZUMAB-BVZR
     Dosage: Q 2 WEEKS
     Route: 042
     Dates: start: 20211117
  6. ZIRABEV [Suspect]
     Active Substance: BEVACIZUMAB-BVZR
     Dosage: Q 2 WEEKS (800 MG)
     Route: 042
     Dates: start: 20211201
  7. ZIRABEV [Suspect]
     Active Substance: BEVACIZUMAB-BVZR
     Dosage: Q 2 WEEKS (300 MG)
     Route: 042
     Dates: start: 20211201
  8. ZIRABEV [Suspect]
     Active Substance: BEVACIZUMAB-BVZR
     Dosage: 10 MG/KG EVERY 3 WEEKS FOR 6MONTHS
     Route: 042
     Dates: start: 20211220

REACTIONS (4)
  - General physical health deterioration [Unknown]
  - Off label use [Unknown]
  - Platelet count decreased [Unknown]
  - Weight increased [Unknown]

NARRATIVE: CASE EVENT DATE: 20211101
